FAERS Safety Report 5472717-1 (Version None)
Quarter: 2007Q4

REPORT INFORMATION
  Report Type: 
  Country: None (occurrence: None)
  Receive Date: 20071001
  Receipt Date: 20061002
  Transmission Date: 20080405
  Serious: Yes (Other)
  Sender: FDA-Public Use
  Company Number: US-ASTRAZENECA-2006UW18825

PATIENT
  Age: 68 Year
  Sex: Female
  Weight: 72.6 kg

DRUGS (9)
  1. ARIMIDEX [Suspect]
     Indication: BREAST CANCER RECURRENT
     Route: 048
     Dates: start: 20010101
  2. FOSAMAX [Concomitant]
  3. CELEBREX [Concomitant]
  4. OSTEO-BIFLEX [Concomitant]
  5. VITAMIN CAP [Concomitant]
  6. TYLENOL (CAPLET) [Concomitant]
     Route: 048
  7. MOTRIN [Concomitant]
     Route: 048
  8. VITAMIN E [Concomitant]
  9. ASCORBIC ACID [Concomitant]

REACTIONS (7)
  - ALOPECIA [None]
  - ARTHRALGIA [None]
  - BREAST CANCER RECURRENT [None]
  - DRY SKIN [None]
  - MYALGIA [None]
  - OSTEOPENIA [None]
  - OSTEOPOROSIS [None]
